FAERS Safety Report 4491466-X (Version None)
Quarter: 2004Q3

REPORT INFORMATION
  Report Type: 
  Country: None (occurrence: None)
  Receive Date: 20040921
  Receipt Date: 20031128
  Transmission Date: 20050211
  Serious: Yes (Death)
  Sender: FDA-Public Use
  Company Number: 167-20785-03120083(0)

PATIENT
  Age: 65 Year
  Sex: Male
  Weight: 86.7 kg

DRUGS (5)
  1. THALOMID [Suspect]
     Indication: MULTIPLE MYELOMA
     Dosage: 100 MG, DAILY, ORAL
     Route: 048
     Dates: start: 20031022
  2. CYCLOPHOSPHAMIDE [Concomitant]
  3. DEXAMETHASONE [Concomitant]
  4. CLODRONATE (CLODRONATE DISODIUM) [Concomitant]
  5. FLUCONAZOLE [Concomitant]

REACTIONS (1)
  - DEATH [None]
